FAERS Safety Report 9324496 (Version 1)
Quarter: 2013Q2

REPORT INFORMATION
  Report Type: Spontaneous
  Country: US (occurrence: None)
  Receive Date: 20130531
  Receipt Date: 20130531
  Transmission Date: 20140414
  Serious: No
  Sender: FDA-Public Use
  Company Number: None

PATIENT
  Age: 7 Year
  Sex: Female
  Weight: 24.04 kg

DRUGS (4)
  1. DESOXIMETASONE [Suspect]
     Indication: ECZEMA
     Route: 061
     Dates: start: 201210, end: 201301
  2. DESOXIMETASONE [Suspect]
     Indication: DERMATITIS ATOPIC
     Route: 061
     Dates: start: 201210, end: 201301
  3. TRIAMCINOLONE [Suspect]
     Indication: ECZEMA
     Route: 061
     Dates: start: 2007, end: 2012
  4. TRIAMCINOLONE [Suspect]
     Indication: DERMATITIS
     Route: 061
     Dates: start: 2007, end: 2012

REACTIONS (1)
  - Drug ineffective [None]
